FAERS Safety Report 19921703 (Version 3)
Quarter: 2021Q4

REPORT INFORMATION
  Report Type: Spontaneous
  Country: DE (occurrence: DE)
  Receive Date: 20211006
  Receipt Date: 20211118
  Transmission Date: 20220303
  Serious: Yes (Life-Threatening, Disabling)
  Sender: FDA-Public Use
  Company Number: DE-CELLTRION INC.-2021DE013511

PATIENT

DRUGS (1)
  1. TRUXIMA [Suspect]
     Active Substance: RITUXIMAB-ABBS
     Indication: Diffuse large B-cell lymphoma
     Dosage: 375 MG/M2 (671.25) EVERY 2 WEEKS (WITH TOTAL OF 10 DOSES)
     Route: 042
     Dates: start: 20170505, end: 20170911

REACTIONS (2)
  - Progressive multifocal leukoencephalopathy [Recovered/Resolved with Sequelae]
  - Contraindicated product administered [Recovered/Resolved with Sequelae]

NARRATIVE: CASE EVENT DATE: 20170801
